FAERS Safety Report 5763025-X (Version None)
Quarter: 2008Q2

REPORT INFORMATION
  Report Type: 
  Country: None (occurrence: None)
  Receive Date: 20080609
  Receipt Date: 20080526
  Transmission Date: 20081010
  Serious: Yes (Hospitalization)
  Sender: FDA-Public Use
  Company Number: JP-ELI_LILLY_AND_COMPANY-JP200805002277

PATIENT
  Age: 83 Year
  Sex: Male

DRUGS (13)
  1. HUMALOG MIX 50/50 [Suspect]
     Indication: TYPE 2 DIABETES MELLITUS
     Dosage: 14 U, EACH MORNING
     Route: 058
     Dates: start: 20080401, end: 20080512
  2. HUMALOG MIX 50/50 [Suspect]
     Dosage: 3 U, EACH EVENING
     Route: 058
     Dates: start: 20080401, end: 20080512
  3. ASPIRIN [Concomitant]
     Dosage: 1 D/F, DAILY (1/D)
     Route: 048
  4. AMARYL [Concomitant]
     Dosage: 2 D/F, DAILY (1/D)
     Route: 048
  5. MAGNESIUM OXIDE [Concomitant]
     Route: 048
  6. NEUQUINON [Concomitant]
     Dosage: 3 D/F, DAILY (1/D)
     Route: 048
  7. BLADDERON [Concomitant]
     Dosage: 1 D/F, DAILY (1/D)
     Route: 048
  8. NORVASC /00972402/ [Concomitant]
     Dosage: 1 D/F, DAILY (1/D)
     Route: 048
  9. GLUCOBAY [Concomitant]
     Dosage: 3 D/F, DAILY (1/D)
     Route: 048
  10. BLOPRESS [Concomitant]
     Dosage: 1 D/F, DAILY (1/D)
     Route: 048
  11. ATELEC [Concomitant]
     Dosage: 2 D/F, DAILY (1/D)
     Route: 048
  12. FAMOTIDINE [Concomitant]
     Dosage: 0.5 D/F, DAILY (1/D)
     Route: 048
  13. ALLELOCK [Concomitant]
     Route: 048

REACTIONS (1)
  - HEPATIC FUNCTION ABNORMAL [None]
